FAERS Safety Report 8927532 (Version 2)
Quarter: 2012Q4

REPORT INFORMATION
  Report Type: 
  Country: US (occurrence: US)
  Receive Date: 20121127
  Receipt Date: 20121203
  Transmission Date: 20130627
  Serious: Yes (Hospitalization, Other)
  Sender: FDA-Public Use
  Company Number: US-BAYER-2012-103920

PATIENT
  Age: 50 Year
  Sex: Female
  Weight: 84.35 kg

DRUGS (6)
  1. BETASERON [Suspect]
     Indication: RELAPSING-REMITTING MULTIPLE SCLEROSIS
     Dosage: 8 miu, QOD
     Route: 058
     Dates: start: 20001017
  2. DILAUDID [Suspect]
  3. GABAPENTIN [Concomitant]
     Indication: LEG PAIN
     Dosage: 600 mg, TID
     Dates: start: 201206
  4. TIZANIDINE [Concomitant]
     Indication: SPASTICITY
     Dosage: dose: 4 mg 1 - 2 Q6 PRN
     Dates: start: 201110
  5. AMLODIPIN [Concomitant]
     Indication: BLOOD PRESSURE ABNORMAL
     Dosage: 5 mg, QD
  6. CLONIDINE [Concomitant]
     Indication: BLOOD PRESSURE ABNORMAL
     Dosage: 0.1 mg, TID

REACTIONS (10)
  - Electrolyte imbalance [Not Recovered/Not Resolved]
  - Decreased appetite [Not Recovered/Not Resolved]
  - Weight decreased [Recovering/Resolving]
  - Faecaloma [Recovered/Resolved]
  - Loss of consciousness [Recovered/Resolved]
  - Mental status changes [Recovered/Resolved]
  - Colitis [Recovering/Resolving]
  - Abdominal pain [Recovering/Resolving]
  - Nausea [Recovering/Resolving]
  - Vomiting [Recovering/Resolving]
